FAERS Safety Report 6374412-3 (Version None)
Quarter: 2009Q3

REPORT INFORMATION
  Report Type: 
  Country: None (occurrence: None)
  Receive Date: 20090921
  Receipt Date: 20090921
  Transmission Date: 20100115
  Serious: Yes (Other)
  Sender: FDA-Public Use
  Company Number: None

PATIENT
  Age: 91 Year
  Sex: Female
  Weight: 78.2 kg

DRUGS (4)
  1. FUROSEMIDE [Suspect]
     Indication: CARDIAC FAILURE CONGESTIVE
     Dosage: 40 MG 1X IN AM BY MOUTH
     Route: 048
     Dates: start: 20090901, end: 20090911
  2. METOPROLOL [Concomitant]
  3. FOSINOPRIL SODIUM [Concomitant]
  4. ISOSORBIDE [Concomitant]

REACTIONS (3)
  - ABASIA [None]
  - ANURIA [None]
  - BACK PAIN [None]
